FAERS Safety Report 9278496 (Version 1)
Quarter: 2013Q2

REPORT INFORMATION
  Report Type: Spontaneous
  Country: FR (occurrence: FR)
  Receive Date: 20130508
  Receipt Date: 20130508
  Transmission Date: 20140414
  Serious: Yes (Hospitalization)
  Sender: FDA-Public Use
  Company Number: FR-SANOFI-AVENTIS-2013SA044184

PATIENT
  Age: 41 Year
  Sex: Female

DRUGS (8)
  1. STILNOX [Suspect]
     Indication: PRODUCT USED FOR UNKNOWN INDICATION
     Route: 048
     Dates: start: 20130309, end: 20130409
  2. TOPALGIC [Suspect]
     Indication: PRODUCT USED FOR UNKNOWN INDICATION
     Dosage: 160 MG DAILY, IF NEEDED
     Route: 048
     Dates: start: 20130318, end: 20130409
  3. ANTINEOPLASTIC AGENTS [Suspect]
     Indication: COLON CANCER
     Route: 048
     Dates: start: 20130316, end: 20130406
  4. XANAX [Suspect]
     Indication: PRODUCT USED FOR UNKNOWN INDICATION
     Route: 048
     Dates: start: 20130209, end: 20130409
  5. SKENAN [Concomitant]
     Dosage: PROLONGED RELEASE?MICROGRANULES IN CAPSULE
     Route: 048
  6. ACTISKENAN [Concomitant]
     Route: 048
  7. SYMBICORT [Concomitant]
     Dosage: POWDER FOR INHALATIONAL
     Route: 055
  8. DOLIPRANE [Concomitant]
     Dates: start: 20130418

REACTIONS (5)
  - Pancreatitis acute [Recovering/Resolving]
  - Abdominal pain upper [Recovering/Resolving]
  - Vomiting [Recovering/Resolving]
  - Hyperhidrosis [Recovering/Resolving]
  - Chills [Recovering/Resolving]
